FAERS Safety Report 4928393-7 (Version None)
Quarter: 2006Q1

REPORT INFORMATION
  Report Type: 
  Country: None (occurrence: None)
  Receive Date: 20060223
  Receipt Date: 20060213
  Transmission Date: 20060701
  Serious: Yes (Hospitalization)
  Sender: FDA-Public Use
  Company Number: 200610111BFR

PATIENT
  Age: 49 Year
  Sex: Male
  Weight: 67 kg

DRUGS (22)
  1. SORAFENIB [Suspect]
     Indication: METASTATIC RENAL CELL CARCINOMA
     Dosage: 400 MG, BID, ORAL; SEE IMAGE
     Route: 048
     Dates: start: 20050824, end: 20050918
  2. SORAFENIB [Suspect]
     Indication: METASTATIC RENAL CELL CARCINOMA
     Dosage: 400 MG, BID, ORAL; SEE IMAGE
     Route: 048
     Dates: start: 20050922, end: 20051018
  3. BENAZEPRIL HCL [Concomitant]
  4. ZOXAN (DOXAZOSINE) [Concomitant]
  5. TRAVATAN [Concomitant]
  6. MORPHINE SULFATE [Concomitant]
  7. FORLAX [Concomitant]
  8. SYMBICORT [Concomitant]
  9. NEURONTIN [Concomitant]
  10. OMEPRAZOLE [Concomitant]
  11. SKENAN [Concomitant]
  12. DEXERYL ^PIERRE FABRE^ [Concomitant]
  13. EOSINE [Concomitant]
  14. SULUPRED [Concomitant]
  15. BI-PROFENID [Concomitant]
  16. NEXIUM [Concomitant]
  17. RIVOTRIL [Concomitant]
  18. DAFALGAN [Concomitant]
  19. DUODERM [Concomitant]
  20. TPN [Concomitant]
  21. SORAFENIB [Suspect]
     Dosage: 400MG, BID, ORAL
     Route: 048
     Dates: start: 20051019, end: 20051213
  22. SORAFENIB [Suspect]
     Dosage: 400MG,BID, ORAL
     Route: 048
     Dates: start: 20051213, end: 20060130

REACTIONS (19)
  - ARTHROPATHY [None]
  - ATELECTASIS [None]
  - BALANCE DISORDER [None]
  - BONE PAIN [None]
  - BRONCHIAL OBSTRUCTION [None]
  - BRONCHOSPASM [None]
  - DECREASED APPETITE [None]
  - EPIDURITIS [None]
  - FATIGUE [None]
  - GANGLION [None]
  - GENERAL PHYSICAL HEALTH DETERIORATION [None]
  - LYMPHADENOPATHY [None]
  - METASTASES TO CENTRAL NERVOUS SYSTEM [None]
  - METASTASES TO THE RESPIRATORY SYSTEM [None]
  - NEURALGIA [None]
  - PERIPHERAL MOTOR NEUROPATHY [None]
  - PLEURAL EFFUSION [None]
  - RASH [None]
  - WEIGHT DECREASED [None]
